FAERS Safety Report 9517028 (Version 1)
Quarter: 2013Q3

REPORT INFORMATION
  Report Type: Spontaneous
  Country: US (occurrence: US)
  Receive Date: 20130911
  Receipt Date: 20130911
  Transmission Date: 20140515
  Serious: No
  Sender: FDA-Public Use
  Company Number: US-PFIZER INC-2013260300

PATIENT
  Age: 67 Year
  Sex: Female
  Weight: 46.26 kg

DRUGS (2)
  1. NEURONTIN [Suspect]
     Dosage: 300 MG, 3X/DAY
     Route: 048
     Dates: start: 2013
  2. SAVELLA [Concomitant]
     Dosage: UNK

REACTIONS (2)
  - Abdominal pain upper [Unknown]
  - Oesophageal disorder [Unknown]
